FAERS Safety Report 18265763 (Version 9)
Quarter: 2025Q2

REPORT INFORMATION
  Report Type: Spontaneous
  Country: PL (occurrence: PL)
  Receive Date: 20200914
  Receipt Date: 20250514
  Transmission Date: 20250717
  Serious: Yes (Other)
  Sender: ROCHE
  Company Number: PL-ROCHE-2242717

PATIENT
  Age: 64 Year
  Sex: Female

DRUGS (2)
  1. TOCILIZUMAB [Suspect]
     Active Substance: TOCILIZUMAB
     Indication: Rheumatoid arthritis
     Dosage: 162 MG/0.9 ML
     Route: 058
     Dates: start: 201808
  2. TOCILIZUMAB [Suspect]
     Active Substance: TOCILIZUMAB
     Route: 058

REACTIONS (16)
  - Urticaria [Recovered/Resolved]
  - Miliaria [Unknown]
  - Eye pruritus [Unknown]
  - Asthenia [Unknown]
  - Dizziness [Unknown]
  - Blood cholesterol increased [Unknown]
  - Hepatic steatosis [Unknown]
  - Hepatomegaly [Unknown]
  - Rash [Unknown]
  - Product storage error [Unknown]
  - Feeling abnormal [Unknown]
  - Liver function test abnormal [Unknown]
  - Infected skin ulcer [Unknown]
  - Product container issue [Unknown]
  - Malaise [Unknown]
  - Immunodeficiency [Unknown]

NARRATIVE: CASE EVENT DATE: 20181201
